FAERS Safety Report 8983207 (Version 1)
Quarter: 2012Q4

REPORT INFORMATION
  Report Type: 
  Country: FR (occurrence: FR)
  Receive Date: 20121224
  Receipt Date: 20121224
  Transmission Date: 20130627
  Serious: Yes (Hospitalization)
  Sender: FDA-Public Use
  Company Number: PHHY2012FR117937

PATIENT
  Age: 43 Year
  Sex: Female

DRUGS (12)
  1. SANDOSTATIN [Suspect]
     Indication: DIABETIC NEUROPATHY
     Dosage: 100 ug, TID
     Route: 042
     Dates: start: 20121030, end: 20121101
  2. PLAVIX [Concomitant]
     Dosage: 75 mg, QD
     Route: 048
  3. CRESTOR [Concomitant]
     Dosage: 10 mg, QD
  4. TRIATEC [Concomitant]
     Dosage: 1.25 mg, QD
  5. UN ALFA [Concomitant]
     Dosage: 0.5 mg, UNK
     Route: 048
  6. KARDEGIC [Concomitant]
     Dosage: 160 mg, UNK
     Route: 048
  7. DETENSIEL [Concomitant]
     Dosage: 2.5 mg, UNK
     Route: 048
  8. FLUDROCORTISONE [Concomitant]
     Dosage: 150 ug, UNK
  9. PROGRAF [Concomitant]
     Dosage: 1.5 mg, UNK
  10. EFFORTIL [Concomitant]
     Dosage: 60 mg, UNK
  11. DOMPERIDONE [Concomitant]
     Dosage: 20 mg, TID
  12. CORTANCYL [Concomitant]
     Dosage: 5 mg, TID
     Route: 048

REACTIONS (3)
  - Hypertension [Recovered/Resolved]
  - Malaise [Recovered/Resolved]
  - Headache [Recovered/Resolved]
